FAERS Safety Report 12288108 (Version 3)
Quarter: 2018Q1

REPORT INFORMATION
  Report Type: Spontaneous
  Country: NL (occurrence: NL)
  Receive Date: 20160420
  Receipt Date: 20180117
  Transmission Date: 20180508
  Serious: Yes (Death, Hospitalization, Other)
  Sender: FDA-Public Use
  Company Number: NL-ASTRAZENECA-2016SE40755

PATIENT
  Age: 26345 Day
  Sex: Male

DRUGS (1)
  1. ZOLADEX [Suspect]
     Active Substance: GOSERELIN ACETATE
     Indication: PROSTATE CANCER
     Dosage: 10,8 IMPLANT ROD 10,8 MG / 3 MONTHS
     Route: 058
     Dates: start: 20160122

REACTIONS (4)
  - Metastases to bone [Unknown]
  - Pulmonary embolism [Recovering/Resolving]
  - Pyrexia [Recovered/Resolved]
  - Death [Fatal]

NARRATIVE: CASE EVENT DATE: 20160415
